FAERS Safety Report 6334466-7 (Version None)
Quarter: 2009Q3

REPORT INFORMATION
  Report Type: 
  Country: None (occurrence: None)
  Receive Date: 20090831
  Receipt Date: 20071001
  Transmission Date: 20100115
  Serious: Yes (Other)
  Sender: FDA-Public Use
  Company Number: US-ASTRAZENECA-2006UW22527

PATIENT
  Age: 44 Year
  Sex: Female
  Weight: 73.5 kg

DRUGS (8)
  1. SEROQUEL [Suspect]
     Indication: SCHIZOPHRENIA
     Dosage: 400 TO 500 MG
     Route: 048
     Dates: start: 19990727, end: 20060606
  2. SEROQUEL [Suspect]
     Indication: BIPOLAR DISORDER
     Dosage: 400 TO 500 MG
     Route: 048
     Dates: start: 19990727, end: 20060606
  3. SEROQUEL [Suspect]
     Dosage: 100-600MG
     Route: 048
     Dates: start: 20030123
  4. SEROQUEL [Suspect]
     Dosage: 100-600MG
     Route: 048
     Dates: start: 20030123
  5. CYMBALTA [Concomitant]
  6. TRILEPTAL [Concomitant]
  7. ESKALITH CR [Concomitant]
     Dates: start: 20030123
  8. FLEXERIL [Concomitant]
     Dates: start: 20061007

REACTIONS (4)
  - DIABETES MELLITUS [None]
  - DIABETIC NEUROPATHY [None]
  - TYPE 1 DIABETES MELLITUS [None]
  - TYPE 2 DIABETES MELLITUS [None]
